FAERS Safety Report 17106603 (Version 1)
Quarter: 2019Q4

REPORT INFORMATION
  Report Type: Spontaneous
  Country: US (occurrence: US)
  Receive Date: 20191108
  Receipt Date: 20191108
  Transmission Date: 20200122
  Serious: No
  Sender: FDA-Public Use
  Company Number: None

PATIENT
  Age: 46 Year
  Sex: Female

DRUGS (2)
  1. BENLYSTA [Suspect]
     Active Substance: BELIMUMAB
     Indication: SYSTEMIC LUPUS ERYTHEMATOSUS
     Route: 058
     Dates: start: 20190516
  2. BADOFEN [Concomitant]

REACTIONS (7)
  - Rash [None]
  - Systemic lupus erythematosus [None]
  - Diarrhoea [None]
  - Arthralgia [None]
  - Condition aggravated [None]
  - Spinal operation [None]
  - Fatigue [None]

NARRATIVE: CASE EVENT DATE: 20191007
